FAERS Safety Report 6945879-4 (Version None)
Quarter: 2010Q3

REPORT INFORMATION
  Report Type: 
  Country: None (occurrence: None)
  Receive Date: 20100827
  Receipt Date: 20100816
  Transmission Date: 20110219
  Serious: Yes (Other)
  Sender: FDA-Public Use
  Company Number: PHHY2010US51861

PATIENT
  Sex: Female

DRUGS (3)
  1. RECLAST [Suspect]
     Dosage: UNK
     Route: 042
     Dates: start: 20081201
  2. LIPITOR [Concomitant]
     Dosage: UNK
  3. CALCIUM [Concomitant]

REACTIONS (4)
  - FACIAL SPASM [None]
  - FOOT FRACTURE [None]
  - HYPOCALCAEMIA [None]
  - PAIN IN JAW [None]
